FAERS Safety Report 20607425 (Version 3)
Quarter: 2022Q2

REPORT INFORMATION
  Report Type: Spontaneous
  Country: US (occurrence: US)
  Receive Date: 20220317
  Receipt Date: 20220503
  Transmission Date: 20220721
  Serious: Yes (Other)
  Sender: FDA-Public Use
  Company Number: US-PFIZER INC-202200413721

PATIENT
  Age: 68 Year
  Sex: Male
  Weight: 99.79 kg

DRUGS (4)
  1. TOVIAZ [Suspect]
     Active Substance: FESOTERODINE FUMARATE
     Dosage: 8 MG
  2. ATENOLOL [Concomitant]
     Active Substance: ATENOLOL
     Dosage: UNK
  3. MELOXICAM [Concomitant]
     Active Substance: MELOXICAM
     Dosage: UNK
  4. VALSARTAN [Concomitant]
     Active Substance: VALSARTAN
     Dosage: UNK

REACTIONS (3)
  - Hip surgery [Unknown]
  - Drug intolerance [Unknown]
  - Dry mouth [Unknown]

NARRATIVE: CASE EVENT DATE: 20220317
